FAERS Safety Report 5742030-3 (Version None)
Quarter: 2008Q2

REPORT INFORMATION
  Report Type: 
  Country: None (occurrence: None)
  Receive Date: 20080514
  Receipt Date: 20080514
  Transmission Date: 20081010
  Serious: Yes (Other)
  Sender: FDA-Public Use
  Company Number: None

PATIENT
  Age: 58 Year
  Sex: Female
  Weight: 81.1939 kg

DRUGS (1)
  1. CHANTIX [Suspect]
     Indication: SMOKING CESSATION THERAPY
     Dosage: 1MG BID PO
     Route: 048
     Dates: start: 20071006, end: 20071221

REACTIONS (30)
  - AFFECT LABILITY [None]
  - ANXIETY [None]
  - CEREBRAL DISORDER [None]
  - CHOKING SENSATION [None]
  - CONSTIPATION [None]
  - DEPRESSION [None]
  - DISSOCIATION [None]
  - DISTURBANCE IN ATTENTION [None]
  - DYSGEUSIA [None]
  - DYSPHAGIA [None]
  - DYSPNOEA [None]
  - ERYTHEMA [None]
  - FEELING ABNORMAL [None]
  - FEELING OF DESPAIR [None]
  - FEELINGS OF WORTHLESSNESS [None]
  - FLATULENCE [None]
  - INSOMNIA [None]
  - MOOD SWINGS [None]
  - MOUTH ULCERATION [None]
  - NAUSEA [None]
  - NICOTINE DEPENDENCE [None]
  - NIGHTMARE [None]
  - ORAL DISORDER [None]
  - PHARYNGEAL DISORDER [None]
  - PHARYNGOLARYNGEAL PAIN [None]
  - STRESS [None]
  - SUICIDAL IDEATION [None]
  - TONGUE ULCERATION [None]
  - VISION BLURRED [None]
  - WEIGHT INCREASED [None]
